FAERS Safety Report 4634117-3 (Version None)
Quarter: 2005Q2

REPORT INFORMATION
  Report Type: 
  Country: None (occurrence: None)
  Receive Date: 20050413
  Receipt Date: 20050405
  Transmission Date: 20051028
  Serious: Yes (Hospitalization)
  Sender: FDA-Public Use
  Company Number: 05P-167-0294410-00

PATIENT
  Age: 37 Year
  Sex: Male

DRUGS (4)
  1. LAMIVUDINE [Suspect]
     Indication: HIV TEST POSITIVE
     Dosage: 300MG PER DAY
     Route: 048
     Dates: start: 20050125
  2. KALETRA [Suspect]
     Indication: HIV TEST POSITIVE
     Route: 048
     Dates: start: 20030805
  3. VIREAD [Suspect]
     Indication: HIV TEST POSITIVE
     Dosage: 245MG PER DAY
     Route: 048
     Dates: start: 20050125
  4. CAPRAVIRINE [Suspect]
     Indication: HIV INFECTION
     Dosage: 1400MG PER DAY
     Route: 048
     Dates: start: 20040709

REACTIONS (9)
  - ALANINE AMINOTRANSFERASE INCREASED [None]
  - ANOREXIA [None]
  - ASPARTATE AMINOTRANSFERASE INCREASED [None]
  - BACK PAIN [None]
  - CHROMATURIA [None]
  - DIARRHOEA [None]
  - HEPATITIS VIRAL [None]
  - LETHARGY [None]
  - VOMITING [None]
